FAERS Safety Report 10158625 (Version 2)
Quarter: 2017Q3

REPORT INFORMATION
  Report Type: Spontaneous
  Country: CA (occurrence: CA)
  Receive Date: 20140508
  Receipt Date: 20170707
  Transmission Date: 20171127
  Serious: Yes (Other)
  Sender: FDA-Public Use
  Company Number: CA-009507513-1405CAN003548

PATIENT
  Age: 89 Year
  Sex: Female

DRUGS (1)
  1. NITRO-DUR [Suspect]
     Active Substance: NITROGLYCERIN
     Dosage: 0.4 MG/H, 1 EVERY 12 HOURS
     Route: 065

REACTIONS (2)
  - Dyspnoea [Recovered/Resolved]
  - Product substitution issue [Unknown]
